FAERS Safety Report 19167477 (Version 3)
Quarter: 2021Q2

REPORT INFORMATION
  Report Type: Spontaneous
  Country: JP (occurrence: JP)
  Receive Date: 20210422
  Receipt Date: 20210614
  Transmission Date: 20210717
  Serious: Yes (Other)
  Sender: FDA-Public Use
  Company Number: JP-AMGEN-JPNSP2021060800

PATIENT
  Age: 53 Year
  Sex: Female

DRUGS (8)
  1. PREDNISOLONE. [Concomitant]
     Active Substance: PREDNISOLONE
     Indication: SYSTEMIC LUPUS ERYTHEMATOSUS
     Dosage: 2 MG, QD
     Route: 048
     Dates: start: 1993
  2. LANSOPRAZOLE. [Concomitant]
     Active Substance: LANSOPRAZOLE
     Indication: PROPHYLAXIS
     Dosage: 15 MG, QD
     Route: 048
     Dates: start: 20210413
  3. DARBEPOETIN ALFA [Suspect]
     Active Substance: DARBEPOETIN ALFA
     Indication: DIALYSIS
     Dosage: 180 UG, 1X/WEEK
     Route: 010
     Dates: start: 20210416
  4. DARBEPOETIN ALFA [Suspect]
     Active Substance: DARBEPOETIN ALFA
     Indication: NEPHROGENIC ANAEMIA
     Dosage: UNK
     Route: 010
  5. CELLCEPT [Concomitant]
     Active Substance: MYCOPHENOLATE MOFETIL\MYCOPHENOLATE MOFETIL HYDROCHLORIDE
     Indication: SYSTEMIC LUPUS ERYTHEMATOSUS
     Dosage: 250 MG, BID
     Route: 048
     Dates: start: 20140519
  6. PICOSULFATE NA [Concomitant]
     Active Substance: SODIUM PICOSULFATE
     Indication: ENDOSCOPY
     Dosage: 1 DF, SINGLE
     Route: 048
     Dates: start: 20210414, end: 20210414
  7. MOVIPREP [ASCORBIC ACID;MACROGOL 4000;POTASSIUM CHLORIDE;SODIUM ASCORB [Concomitant]
     Indication: ENDOSCOPY
     Dosage: 1 DF, SINGLE
     Route: 048
     Dates: start: 20210415, end: 20210415
  8. NAFAMOSTAT [NAFAMOSTAT MESILATE] [Concomitant]
     Indication: DIALYSIS
     Dosage: 105 MG, 3X/WEEK
     Route: 042
     Dates: start: 20210414

REACTIONS (2)
  - Aplasia pure red cell [Unknown]
  - Anaemia [Unknown]

NARRATIVE: CASE EVENT DATE: 202104
